FAERS Safety Report 11836110 (Version 1)
Quarter: 2015Q4

REPORT INFORMATION
  Report Type: Spontaneous
  Country: US (occurrence: None)
  Receive Date: 20151214
  Receipt Date: 20151214
  Transmission Date: 20160305
  Serious: Yes (Hospitalization)
  Sender: FDA-Public Use
  Company Number: None

PATIENT
  Age: 67 Year
  Sex: Female

DRUGS (1)
  1. BACLOFEN. [Suspect]
     Active Substance: BACLOFEN
     Indication: MYELOPATHY
     Route: 048
     Dates: start: 20150304, end: 20150310

REACTIONS (9)
  - Fall [None]
  - Acute kidney injury [None]
  - Blood creatine phosphokinase increased [None]
  - Toxicologic test abnormal [None]
  - Urine ketone body present [None]
  - Muscular weakness [None]
  - Haemoconcentration [None]
  - Ecchymosis [None]
  - Skin abrasion [None]

NARRATIVE: CASE EVENT DATE: 20150310
